FAERS Safety Report 14983815 (Version 1)
Quarter: 2018Q2

REPORT INFORMATION
  Report Type: Spontaneous
  Country: US (occurrence: US)
  Receive Date: 20180607
  Receipt Date: 20180607
  Transmission Date: 20180711
  Serious: Yes (Hospitalization, Disabling, Other)
  Sender: FDA-Public Use
  Company Number: US-JNJFOC-20180604415

PATIENT
  Age: 49 Year
  Sex: Male

DRUGS (1)
  1. INVOKANA [Suspect]
     Active Substance: CANAGLIFLOZIN
     Indication: TYPE 2 DIABETES MELLITUS
     Route: 048
     Dates: start: 20130610

REACTIONS (6)
  - Dry gangrene [Unknown]
  - Staphylococcal osteomyelitis [Unknown]
  - Toe amputation [Unknown]
  - Cellulitis [Unknown]
  - Diabetic foot [Unknown]
  - Leg amputation [Unknown]

NARRATIVE: CASE EVENT DATE: 201402
